FAERS Safety Report 16456224 (Version 4)
Quarter: 2019Q3

REPORT INFORMATION
  Report Type: Report from Study
  Country: TH (occurrence: TH)
  Receive Date: 20190620
  Receipt Date: 20190801
  Transmission Date: 20191004
  Serious: Yes (Hospitalization)
  Sender: FDA-Public Use
  Company Number: PHHO2017TH015618

PATIENT
  Age: 2 Year
  Sex: Male

DRUGS (5)
  1. ICL670A [Suspect]
     Active Substance: DEFERASIROX
     Indication: CHELATION THERAPY
     Dosage: 180 MG, QD
     Route: 048
     Dates: start: 20170816, end: 20180104
  2. ICL670A [Suspect]
     Active Substance: DEFERASIROX
     Dosage: 90 MG, QD
     Route: 048
     Dates: start: 20180105, end: 20180205
  3. ICL670A [Suspect]
     Active Substance: DEFERASIROX
     Dosage: 270 MG, QD
     Route: 048
     Dates: start: 20180720, end: 20190107
  4. ICL670A [Suspect]
     Active Substance: DEFERASIROX
     Dosage: 360 MG, QD
     Route: 048
     Dates: start: 20190108, end: 20190307
  5. ICL670A [Suspect]
     Active Substance: DEFERASIROX
     Dosage: 180 MG, QD
     Route: 048
     Dates: start: 20180208, end: 20180719

REACTIONS (7)
  - Cholecystitis acute [Recovered/Resolved]
  - Jaundice cholestatic [Recovered/Resolved]
  - Upper gastrointestinal haemorrhage [Recovered/Resolved]
  - Gastroenteritis [Recovered/Resolved]
  - Gastroenteritis viral [Recovered/Resolved]
  - Stress ulcer [Recovered/Resolved]
  - Lactase deficiency [Recovered/Resolved]

NARRATIVE: CASE EVENT DATE: 20171102
